FAERS Safety Report 8197596-3 (Version None)
Quarter: 2012Q1

REPORT INFORMATION
  Report Type: 
  Country: None (occurrence: None)
  Receive Date: 20120309
  Receipt Date: 20120224
  Transmission Date: 20120608
  Serious: Yes (Hospitalization, Other)
  Sender: FDA-Public Use
  Company Number: JP-ROCHE-1041277

PATIENT
  Sex: Female
  Weight: 37 kg

DRUGS (5)
  1. FLOMOX [Concomitant]
     Indication: NASOPHARYNGITIS
     Route: 048
     Dates: start: 20120213, end: 20120214
  2. TAMIFLU [Suspect]
     Indication: ANTIVIRAL PROPHYLAXIS
     Route: 048
     Dates: start: 20120213, end: 20120214
  3. ASPIRIN [Concomitant]
     Indication: NASOPHARYNGITIS
     Route: 048
     Dates: start: 20120213, end: 20120214
  4. ASTOMIN [Concomitant]
     Indication: NASOPHARYNGITIS
     Route: 048
     Dates: start: 20120213, end: 20120214
  5. REBAMIPIDE [Concomitant]
     Indication: NASOPHARYNGITIS
     Route: 048
     Dates: start: 20120213, end: 20120214

REACTIONS (5)
  - HALLUCINATION [None]
  - DYSTONIA [None]
  - HALLUCINATION, AUDITORY [None]
  - RENAL IMPAIRMENT [None]
  - TREMOR [None]
